FAERS Safety Report 6199351-2 (Version None)
Quarter: 2009Q2

REPORT INFORMATION
  Report Type: 
  Country: None (occurrence: None)
  Receive Date: 20090520
  Receipt Date: 20090520
  Transmission Date: 20091009
  Serious: Yes (Life-Threatening, Disabling)
  Sender: FDA-Public Use
  Company Number: None

PATIENT
  Age: 47 Year
  Sex: Male
  Weight: 86 kg

DRUGS (7)
  1. EPTIFIBATIDE SCHERING PLOUGH [Suspect]
     Indication: MYOCARDIAL INFARCTION
     Dosage: DRIP IV DRIP   2.5 HOURS
     Route: 042
     Dates: start: 20090511, end: 20090511
  2. ENOXAPARIN SODIUM [Suspect]
     Indication: MYOCARDIAL INFARCTION
     Dosage: 90MG Q12H SQ   ONE DOSE
     Route: 058
     Dates: start: 20090511, end: 20090511
  3. ASPIRIN [Concomitant]
  4. ATORVASTATIN CALCIUM [Concomitant]
  5. FAMOTIDINE [Concomitant]
  6. METOPROLOL IV [Concomitant]
  7. ZOLPIDEM TARTRATE [Concomitant]

REACTIONS (1)
  - PLATELET COUNT DECREASED [None]
